FAERS Safety Report 18490749 (Version 1)
Quarter: 2020Q4

REPORT INFORMATION
  Report Type: Spontaneous
  Country: US (occurrence: US)
  Receive Date: 20201111
  Receipt Date: 20201111
  Transmission Date: 20210114
  Serious: Yes (Other)
  Sender: FDA-Public Use
  Company Number: US-CADILA HEALTHCARE LIMITED-US-ZYDUS-057845

PATIENT

DRUGS (2)
  1. ERLOTINIB [Suspect]
     Active Substance: ERLOTINIB
     Indication: NON-SMALL CELL LUNG CANCER METASTATIC
     Dosage: UNK
     Route: 065
  2. ERLOTINIB [Suspect]
     Active Substance: ERLOTINIB
     Indication: BREAST CANCER
     Dosage: DOSE DECREASED
     Route: 065

REACTIONS (8)
  - Dermatitis acneiform [Unknown]
  - Paronychia [Unknown]
  - Naevoid melanoma [Unknown]
  - Xerosis [Unknown]
  - Rash pruritic [Unknown]
  - Hypersensitivity vasculitis [Recovered/Resolved]
  - Hair texture abnormal [Unknown]
  - Melanocytic naevus [Unknown]
